FAERS Safety Report 7702191-3 (Version None)
Quarter: 2011Q3

REPORT INFORMATION
  Report Type: 
  Country: None (occurrence: None)
  Receive Date: 20110822
  Receipt Date: 20110819
  Transmission Date: 20111222
  Serious: Yes (Hospitalization, Disabling, Other)
  Sender: FDA-Public Use
  Company Number: BR-ABBOTT-10P-020-0620113-00

PATIENT
  Sex: Male
  Weight: 68 kg

DRUGS (7)
  1. HUMIRA [Suspect]
     Indication: RHEUMATOID ARTHRITIS
     Route: 058
     Dates: start: 20061101
  2. CLORANA [Concomitant]
     Indication: HYPERTENSION
     Dosage: 1 PER DAY
     Route: 048
  3. HUMIRA [Suspect]
  4. PONDERA [Concomitant]
     Indication: HYPERTENSION
     Dosage: 1 PER DAY
     Route: 048
  5. OMEPRAZOLE [Concomitant]
     Indication: GASTRIC DISORDER
     Dosage: 1 PER DAY
     Route: 048
  6. TRIAMCINOLONE+MELOXICAM+HYDROCHLOROTHIAZIDE+FAMOTIDINE [Concomitant]
     Indication: RHEUMATOID ARTHRITIS
     Dosage: 2MG/15MG/25MG/20MG
     Route: 048
     Dates: start: 19980101
  7. CAPTOPRIL [Concomitant]
     Indication: HYPERTENSION
     Dosage: 2 PER DAY
     Route: 048

REACTIONS (3)
  - OSTEOARTHRITIS [None]
  - LABYRINTHITIS [None]
  - ABASIA [None]
